FAERS Safety Report 5913940-9 (Version None)
Quarter: 2008Q4

REPORT INFORMATION
  Report Type: 
  Country: None (occurrence: None)
  Receive Date: 20081009
  Receipt Date: 20080929
  Transmission Date: 20090506
  Serious: Yes (Other)
  Sender: FDA-Public Use
  Company Number: IT-MERCK-0810USA00121

PATIENT
  Age: 4 Year
  Sex: Male

DRUGS (4)
  1. ELSPAR [Concomitant]
     Route: 065
  2. DECADRON [Suspect]
     Indication: ACUTE LYMPHOCYTIC LEUKAEMIA
     Route: 065
  3. DOXORUBICIN [Concomitant]
     Route: 065
  4. VINCRISTINE SULFATE [Concomitant]
     Route: 065

REACTIONS (1)
  - ENCEPHALOPATHY [None]
